FAERS Safety Report 7040460-3 (Version None)
Quarter: 2010Q4

REPORT INFORMATION
  Report Type: 
  Country: None (occurrence: None)
  Receive Date: 20101008
  Receipt Date: 20101008
  Transmission Date: 20110411
  Serious: Yes (Disabling, Other)
  Sender: FDA-Public Use
  Company Number: None

PATIENT
  Sex: Female
  Weight: 81.6475 kg

DRUGS (2)
  1. ISOTRETINOIN [Suspect]
     Indication: ACNE
     Dosage: FIBROMYALGIA
  2. ACCUTANE [Suspect]
     Indication: DERMATITIS
     Dosage: BONE LOSS BACK, NECK

REACTIONS (12)
  - ABORTION SPONTANEOUS [None]
  - ANAL FISSURE [None]
  - BACK PAIN [None]
  - BLOOD PRESSURE INCREASED [None]
  - DEPRESSION [None]
  - DERMATITIS [None]
  - DRY EYE [None]
  - FATIGUE [None]
  - NIGHT BLINDNESS [None]
  - OSTEOARTHRITIS [None]
  - RECTAL HAEMORRHAGE [None]
  - SUICIDAL IDEATION [None]
